FAERS Safety Report 10110044 (Version 2)
Quarter: 2014Q2

REPORT INFORMATION
  Report Type: Spontaneous
  Country: BR (occurrence: BR)
  Receive Date: 20140425
  Receipt Date: 20140425
  Transmission Date: 20141212
  Serious: Yes (Death, Hospitalization, Other)
  Sender: FDA-Public Use
  Company Number: BR-ALEXION PHARMACEUTICALS INC.-A201400740

PATIENT
  Sex: 0

DRUGS (1)
  1. SOLIRIS 300MG [Suspect]
     Indication: HAEMOLYTIC URAEMIC SYNDROME
     Dosage: 300 MG, Q2W
     Route: 042
     Dates: start: 20140122, end: 20140212

REACTIONS (8)
  - Cardio-respiratory arrest [Fatal]
  - Nosocomial infection [Fatal]
  - Renal artery stenosis [Unknown]
  - Haemorrhage [Unknown]
  - Platelet count decreased [Unknown]
  - Anuria [Unknown]
  - Septic shock [Unknown]
  - Pneumonia [Not Recovered/Not Resolved]
